FAERS Safety Report 11381718 (Version 1)
Quarter: 2015Q3

REPORT INFORMATION
  Report Type: Report from Study
  Country: US (occurrence: US)
  Receive Date: 20150814
  Receipt Date: 20150814
  Transmission Date: 20151125
  Serious: Yes (Other)
  Sender: FDA-Public Use
  Company Number: US-BAXALTA-2015BAX025381

PATIENT
  Sex: Female

DRUGS (4)
  1. HUMAN NORMAL IMMUNOGLOBULIN; HYALURONIDASE [Suspect]
     Active Substance: HUMAN IMMUNOGLOBULIN G\HYALURONIDASE RECOMBINANT HUMAN
     Dosage: 50 G, EVERY 3 WK
     Route: 058
  2. HUMAN NORMAL IMMUNOGLOBULIN; HYALURONIDASE [Suspect]
     Active Substance: HUMAN IMMUNOGLOBULIN G\HYALURONIDASE RECOMBINANT HUMAN
     Indication: IMMUNODEFICIENCY COMMON VARIABLE
     Dosage: RAMP UP
     Route: 058
  3. LEVAQUIN [Concomitant]
     Active Substance: LEVOFLOXACIN
     Indication: PROPHYLAXIS
     Dosage: 500MILLIGRAM
     Route: 065
  4. HUMAN NORMAL IMMUNOGLOBULIN; HYALURONIDASE [Suspect]
     Active Substance: HUMAN IMMUNOGLOBULIN G\HYALURONIDASE RECOMBINANT HUMAN
     Indication: PRIMARY IMMUNODEFICIENCY SYNDROME
     Dosage: EVERY 3 WK
     Route: 058

REACTIONS (7)
  - Pyrexia [Not Recovered/Not Resolved]
  - Vocal cord disorder [Not Recovered/Not Resolved]
  - Infusion site discomfort [Not Recovered/Not Resolved]
  - Rheumatoid arthritis [Not Recovered/Not Resolved]
  - Infusion site pain [Not Recovered/Not Resolved]
  - Dysphonia [Not Recovered/Not Resolved]
  - Peripheral swelling [Not Recovered/Not Resolved]
